FAERS Safety Report 9587113 (Version 1)
Quarter: 2013Q4

REPORT INFORMATION
  Report Type: Spontaneous
  Country: DE (occurrence: DE)
  Receive Date: 20131003
  Receipt Date: 20131003
  Transmission Date: 20140711
  Serious: Yes (Hospitalization)
  Sender: FDA-Public Use
  Company Number: DE-MERCK-1310DEU000130

PATIENT
  Age: 80 Year
  Sex: Female

DRUGS (6)
  1. MIRTAZAPINE [Suspect]
     Indication: DEPRESSION
     Dosage: 15 MG, QD
     Route: 048
     Dates: end: 201306
  2. MIRTAZAPINE [Suspect]
     Dosage: 7.5 MG, QPM
     Route: 048
     Dates: start: 201306
  3. TAVOR (LORAZEPAM) [Concomitant]
     Dosage: UNK
     Dates: start: 2009
  4. DESLORATADINE [Concomitant]
  5. TENORMIN [Concomitant]
  6. VOTUM PLUS [Concomitant]

REACTIONS (3)
  - Inappropriate antidiuretic hormone secretion [Recovering/Resolving]
  - Hyponatraemia [Recovering/Resolving]
  - Syncope [Recovering/Resolving]
